FAERS Safety Report 4720194-8 (Version None)
Quarter: 2005Q3

REPORT INFORMATION
  Report Type: 
  Country: None (occurrence: None)
  Receive Date: 20050719
  Receipt Date: 20050704
  Transmission Date: 20060218
  Serious: Yes (Hospitalization)
  Sender: FDA-Public Use
  Company Number: 2005JP001388

PATIENT
  Age: 59 Year
  Sex: Male

DRUGS (2)
  1. PROGRAF [Suspect]
     Indication: RENAL TRANSPLANT
     Dates: start: 20040515
  2. MYCOPHENOLATE MOFETIL (MYCOPHENOLATE MOFETIL) [Concomitant]

REACTIONS (1)
  - GASTRIC ULCER HAEMORRHAGE [None]
